FAERS Safety Report 5197768-6 (Version None)
Quarter: 2007Q1

REPORT INFORMATION
  Report Type: 
  Country: None (occurrence: None)
  Receive Date: 20070103
  Receipt Date: 20061227
  Transmission Date: 20070707
  Serious: Yes (Death)
  Sender: FDA-Public Use
  Company Number: FR-MERCK-0612FRA00098

PATIENT
  Age: 41 Year
  Sex: Male

DRUGS (11)
  1. PRIMAXIN [Suspect]
     Indication: INFECTION
     Route: 042
     Dates: start: 19900822, end: 19900828
  2. CLORAZEPATE DIPOTASSIUM [Concomitant]
     Indication: ANXIETY
     Route: 048
     Dates: start: 19900721
  3. ACETAMINOPHEN [Concomitant]
     Route: 042
     Dates: start: 19900814, end: 19900826
  4. LORAZEPAM [Concomitant]
     Indication: ANXIETY
     Route: 048
     Dates: start: 19900721
  5. AMIKACIN [Concomitant]
     Indication: INFECTION
     Route: 042
     Dates: start: 19900813, end: 19900827
  6. AMPHOTERICIN B [Concomitant]
     Indication: FUNGAL INFECTION
     Route: 042
     Dates: start: 19900818, end: 19900827
  7. COLISTIN [Concomitant]
     Indication: INFECTION
     Route: 065
  8. PREDNISOLONE SODIUM METASULFOBENZOATE [Concomitant]
     Route: 065
  9. CEFTAZIDIME [Concomitant]
     Indication: INFECTION
     Route: 065
  10. ALUMINUM HYDROXIDE AND MAGNESIUM HYDROXIDE [Concomitant]
     Route: 048
  11. DEXCHLORPHENIRAMINE MALEATE [Concomitant]
     Indication: HYPERSENSITIVITY
     Route: 065

REACTIONS (2)
  - BONE MARROW FAILURE [None]
  - SHOCK [None]
